FAERS Safety Report 8542490-9 (Version None)
Quarter: 2012Q3

REPORT INFORMATION
  Report Type: 
  Country: None (occurrence: None)
  Receive Date: 20120726
  Receipt Date: 20120109
  Transmission Date: 20120928
  Serious: Yes (Hospitalization)
  Sender: FDA-Public Use
  Company Number: US-ASTRAZENECA-2010SE42563

PATIENT
  Age: 59 Year
  Sex: Female
  Weight: 154.2 kg

DRUGS (19)
  1. METHOTREXATE [Concomitant]
  2. DEPAKOTE [Concomitant]
     Indication: BIPOLAR DISORDER
  3. SEROQUEL [Suspect]
     Route: 048
  4. SEROQUEL [Suspect]
     Dosage: 50MG IN MORNING AND 50 MG AT LUNCH AND 400MG AT NIGHT
     Route: 048
     Dates: start: 20110101
  5. ULTRAM [Concomitant]
  6. WELLBUTRIN [Concomitant]
     Indication: BIPOLAR DISORDER
     Dates: start: 20100101
  7. FIORICET [Concomitant]
  8. BLOOD PRESSURE MEDICATION [Concomitant]
  9. FOLIC ACID [Concomitant]
  10. SEROQUEL [Suspect]
     Route: 048
     Dates: start: 20100830, end: 20100903
  11. SEROQUEL [Suspect]
     Route: 048
     Dates: start: 20100905
  12. MIRAPEX [Concomitant]
  13. ATENOLOL [Concomitant]
  14. LORAZEPAM [Concomitant]
     Dosage: PRN
  15. LAMICTAL [Concomitant]
  16. EFFEXOR [Concomitant]
  17. SEROQUEL [Suspect]
     Indication: BIPOLAR DISORDER
     Route: 048
     Dates: start: 20100201, end: 20100601
  18. PROSOM [Concomitant]
     Indication: SLEEP DISORDER
  19. TEGRETOL [Concomitant]

REACTIONS (8)
  - DRUG INEFFECTIVE [None]
  - MANIA [None]
  - DRUG DOSE OMISSION [None]
  - EMOTIONAL DISTRESS [None]
  - SOMNOLENCE [None]
  - CONVERSION DISORDER [None]
  - DEPRESSED MOOD [None]
  - WEIGHT INCREASED [None]
